FAERS Safety Report 8918540 (Version 1)
Quarter: 2012Q4

REPORT INFORMATION
  Report Type: 
  Country: US (occurrence: US)
  Receive Date: 20121120
  Receipt Date: 20121120
  Transmission Date: 20130627
  Serious: No
  Sender: FDA-Public Use
  Company Number: US-ASTRAZENECA-2012SE18892

PATIENT
  Age: 59 Year
  Sex: Female

DRUGS (22)
  1. NEXIUM [Suspect]
     Route: 048
  2. LEXAPRO [Interacting]
     Indication: DEPRESSION
     Route: 048
     Dates: start: 20120221, end: 20120221
  3. LEXAPRO [Interacting]
     Indication: ANXIETY
     Route: 048
     Dates: start: 20120221, end: 20120221
  4. LEXAPRO [Interacting]
     Indication: DEPRESSION
     Route: 048
     Dates: start: 20120222, end: 20120222
  5. LEXAPRO [Interacting]
     Indication: ANXIETY
     Route: 048
     Dates: start: 20120222, end: 20120222
  6. LEXAPRO [Interacting]
     Indication: DEPRESSION
     Route: 048
     Dates: start: 20120223
  7. LEXAPRO [Interacting]
     Indication: ANXIETY
     Route: 048
     Dates: start: 20120223
  8. VALIUM [Concomitant]
     Indication: PANIC ATTACK
  9. BENTYL [Concomitant]
  10. CORGARD [Concomitant]
     Indication: HEART RATE INCREASED
  11. ZANTAC [Concomitant]
  12. CARAFATE [Concomitant]
  13. LYRICA [Concomitant]
  14. ELAVIL [Concomitant]
  15. ZOFRAN [Concomitant]
  16. VITAMIN E [Concomitant]
  17. CO Q 10 [Concomitant]
  18. VITAMIN B12 [Concomitant]
  19. RESTASIS [Concomitant]
  20. CALCIUM [Concomitant]
  21. GLUCOSAMINE [Concomitant]
  22. FISH OIL [Concomitant]

REACTIONS (3)
  - Drug interaction [Not Recovered/Not Resolved]
  - Feeling abnormal [Not Recovered/Not Resolved]
  - Adverse event [Unknown]
